FAERS Safety Report 9207997 (Version 1)
Quarter: 2013Q2

REPORT INFORMATION
  Report Type: Spontaneous
  Country: US (occurrence: US)
  Receive Date: 20130403
  Receipt Date: 20130403
  Transmission Date: 20140414
  Serious: Yes (Hospitalization)
  Sender: FDA-Public Use
  Company Number: US-ELI_LILLY_AND_COMPANY-US201303009217

PATIENT
  Sex: 0

DRUGS (3)
  1. ADCIRCA [Suspect]
     Indication: PULMONARY ARTERIAL HYPERTENSION
     Dosage: UNK
  2. TYVASO [Concomitant]
  3. LETAIRIS [Concomitant]

REACTIONS (1)
  - Dyspnoea [Unknown]
